FAERS Safety Report 5822293-6 (Version None)
Quarter: 2008Q3

REPORT INFORMATION
  Report Type: 
  Country: None (occurrence: None)
  Receive Date: 20080725
  Receipt Date: 20080428
  Transmission Date: 20090109
  Serious: No
  Sender: FDA-Public Use
  Company Number: US-AMGEN-KDL276987

PATIENT
  Sex: Female
  Weight: 92.6 kg

DRUGS (11)
  1. PROCRIT [Suspect]
     Indication: ANAEMIA OF MALIGNANT DISEASE
     Dates: start: 20080331
  2. GLYBURIDE [Concomitant]
  3. ATENOLOL [Concomitant]
  4. FOSINOPRIL SODIUM [Concomitant]
  5. MECLIZINE [Concomitant]
  6. PRILOSEC [Concomitant]
  7. LIPITOR [Concomitant]
  8. ETOPOSIDE [Concomitant]
  9. BLOOD CELLS, PACKED HUMAN [Concomitant]
  10. PLATELETS [Concomitant]
  11. NEULASTA [Concomitant]

REACTIONS (3)
  - BLOOD GLUCOSE INCREASED [None]
  - MUSCULAR WEAKNESS [None]
  - PLATELET COUNT DECREASED [None]
